FAERS Safety Report 8029542-7 (Version None)
Quarter: 2012Q1

REPORT INFORMATION
  Report Type: 
  Country: None (occurrence: None)
  Receive Date: 20120109
  Receipt Date: 20120103
  Transmission Date: 20120608
  Serious: Yes (Other)
  Sender: FDA-Public Use
  Company Number: US-SP-2012-00084

PATIENT
  Sex: Female

DRUGS (3)
  1. TUBERSOL [Suspect]
     Indication: TUBERCULIN TEST
     Route: 030
     Dates: start: 20111111, end: 20111111
  2. LOWDEAN [Concomitant]
  3. NORTRIPTYLINE HCL [Concomitant]

REACTIONS (6)
  - WRONG DRUG ADMINISTERED [None]
  - INCORRECT ROUTE OF DRUG ADMINISTRATION [None]
  - OVERDOSE [None]
  - MUSCULOSKELETAL PAIN [None]
  - TENDONITIS [None]
  - PAIN IN EXTREMITY [None]
